FAERS Safety Report 9376229 (Version 2)
Quarter: 2013Q3

REPORT INFORMATION
  Report Type: Spontaneous
  Country: US (occurrence: US)
  Receive Date: 20130701
  Receipt Date: 20130820
  Transmission Date: 20140515
  Serious: Yes (Hospitalization)
  Sender: FDA-Public Use
  Company Number: US-009507513-1306USA014147

PATIENT
  Sex: Female

DRUGS (17)
  1. SINGULAIR [Suspect]
  2. ASMANEX TWISTHALER [Suspect]
  3. NASONEX [Suspect]
  4. NEXIUM [Suspect]
  5. FORADIL AEROLIZER [Suspect]
     Indication: CHRONIC OBSTRUCTIVE PULMONARY DISEASE
     Dosage: ONE PUFF, BID
     Route: 055
     Dates: start: 20121003
  6. SPIRIVA [Concomitant]
  7. VENTOLIN (ALBUTEROL) [Concomitant]
  8. PROAIR (ALBUTEROL SULFATE) [Concomitant]
  9. CARDIZEM [Concomitant]
  10. COREG [Concomitant]
  11. PHYTONADIONE [Concomitant]
  12. LEVOCETIRIZINE [Concomitant]
  13. KLOR-CON [Concomitant]
  14. LASIX (FUROSEMIDE SODIUM) [Concomitant]
  15. VITAMINS (UNSPECIFIED) [Concomitant]
  16. SALCATONIN [Concomitant]
  17. DEPAKOTE [Concomitant]

REACTIONS (3)
  - Pneumonia [Recovering/Resolving]
  - Dyspnoea [Recovering/Resolving]
  - Product quality issue [Unknown]
